FAERS Safety Report 6649388-1 (Version None)
Quarter: 2010Q1

REPORT INFORMATION
  Report Type: 
  Country: None (occurrence: None)
  Receive Date: 20100324
  Receipt Date: 20100312
  Transmission Date: 20100710
  Serious: Yes (Other)
  Sender: FDA-Public Use
  Company Number: US-PFIZER INC-2010020208

PATIENT
  Sex: Male
  Weight: 73.469 kg

DRUGS (7)
  1. XALATAN [Suspect]
     Indication: GLAUCOMA
     Dosage: 2 GTT, 1X/DAY
  2. COSOPT [Suspect]
     Indication: GLAUCOMA
     Dosage: 2 GTT, 2X/DAY
     Dates: start: 20090401, end: 20100201
  3. METOPROLOL [Concomitant]
     Dosage: UNK
  4. HYDROCHLOROTHIAZIDE [Concomitant]
     Dosage: UNK
  5. NEXIUM [Concomitant]
     Dosage: UNK
  6. LIPITOR [Concomitant]
     Dosage: UNK
  7. SYNTHROID [Concomitant]
     Dosage: UNK

REACTIONS (2)
  - HALLUCINATION, VISUAL [None]
  - INTRAOCULAR PRESSURE INCREASED [None]
